FAERS Safety Report 6716145-7 (Version None)
Quarter: 2010Q2

REPORT INFORMATION
  Report Type: 
  Country: None (occurrence: None)
  Receive Date: 20100507
  Receipt Date: 20100503
  Transmission Date: 20101027
  Serious: Yes (Life-Threatening, Disabling, Other)
  Sender: FDA-Public Use
  Company Number: US-MERCK-1004USA04308

PATIENT
  Age: 40 Year
  Sex: Female
  Weight: 80 kg

DRUGS (3)
  1. JANUVIA [Suspect]
     Indication: TYPE 2 DIABETES MELLITUS
     Route: 048
     Dates: start: 20091201, end: 20100318
  2. XYZAL [Concomitant]
     Route: 048
  3. METFORMIN [Concomitant]
     Route: 065

REACTIONS (2)
  - GLOSSITIS [None]
  - URTICARIA [None]
